FAERS Safety Report 10738127 (Version 1)
Quarter: 2015Q1

REPORT INFORMATION
  Report Type: Spontaneous
  Country: US (occurrence: None)
  Receive Date: 20150122
  Receipt Date: 20150122
  Transmission Date: 20150721
  Serious: Yes (Other)
  Sender: FDA-Public Use
  Company Number: None

PATIENT
  Age: 59 Year
  Sex: Female

DRUGS (6)
  1. LAMOTRIGINE 100MG [Suspect]
     Active Substance: LAMOTRIGINE
     Dosage: 100MG, QID?
  2. LAMICTAL DAW [Concomitant]
  3. LEVETIRACTAM [Suspect]
     Active Substance: LEVETIRACETAM
     Dosage: 250 BID?
  4. TOPIRAMATE. [Suspect]
     Active Substance: TOPIRAMATE
     Indication: SEIZURE
     Route: 048
     Dates: start: 201104, end: 201104
  5. KEPPRA DAW [Concomitant]
  6. TOPAMAX (DAW [Concomitant]

REACTIONS (6)
  - Disorientation [None]
  - Vision blurred [None]
  - Dizziness [None]
  - Diplopia [None]
  - Balance disorder [None]
  - Asthenia [None]

NARRATIVE: CASE EVENT DATE: 201104
